FAERS Safety Report 19965501 (Version 1)
Quarter: 2021Q4

REPORT INFORMATION
  Report Type: Spontaneous
  Country: US (occurrence: US)
  Receive Date: 20211018
  Receipt Date: 20211018
  Transmission Date: 20220303
  Serious: No
  Sender: FDA-Public Use
  Company Number: US-JACOBUS PHARMACEUTICAL COMPANY, INC.-2120688

PATIENT
  Age: 55 Year
  Sex: Female

DRUGS (1)
  1. RUZURGI [Suspect]
     Active Substance: AMIFAMPRIDINE
     Indication: Myasthenic syndrome
     Route: 048
     Dates: start: 20200311

REACTIONS (1)
  - Nasal congestion [Unknown]
